FAERS Safety Report 5397255-6 (Version None)
Quarter: 2007Q3

REPORT INFORMATION
  Report Type: 
  Country: None (occurrence: None)
  Receive Date: 20070723
  Receipt Date: 20070705
  Transmission Date: 20080115
  Serious: Yes (Life-Threatening, Hospitalization)
  Sender: FDA-Public Use
  Company Number: DSA_30105_2007

PATIENT
  Sex: Male

DRUGS (3)
  1. TAVOR /00273201/ (TAVOR) [Suspect]
     Dosage: ORAL
     Route: 048
     Dates: start: 20070612, end: 20070612
  2. AMOXICILLIN [Suspect]
     Dosage: ORAL
     Route: 048
     Dates: start: 20070612, end: 20070612
  3. ANTIDEPRESSANTS (ANTIDEPRESSANT) [Suspect]
     Dates: start: 20070612, end: 20070612

REACTIONS (7)
  - DIPLOPIA [None]
  - DRUG SCREEN POSITIVE [None]
  - FATIGUE [None]
  - MYDRIASIS [None]
  - OVERDOSE [None]
  - SPEECH DISORDER [None]
  - SUICIDE ATTEMPT [None]
